FAERS Safety Report 21667097 (Version 2)
Quarter: 2023Q1

REPORT INFORMATION
  Report Type: Report from Study
  Country: CA (occurrence: CA)
  Receive Date: 20221201
  Receipt Date: 20230327
  Transmission Date: 20230418
  Serious: Yes (Other)
  Sender: FDA-Public Use
  Company Number: CA-JNJFOC-20221159236

PATIENT
  Age: 7 Decade
  Sex: Female
  Weight: 102 kg

DRUGS (1)
  1. REMICADE [Suspect]
     Active Substance: INFLIXIMAB
     Indication: Crohn^s disease
     Dosage: THE PATIENT RECEIVED 39TH INFUSION OF 600 MG ON 20-MAR-2023.
     Route: 042
     Dates: start: 20170612

REACTIONS (3)
  - Uterine cancer [Unknown]
  - Melaena [Recovered/Resolved]
  - Stoma creation [Unknown]
